FAERS Safety Report 18000529 (Version 1)
Quarter: 2020Q3

REPORT INFORMATION
  Report Type: Spontaneous
  Country: US (occurrence: US)
  Receive Date: 20200709
  Receipt Date: 20200709
  Transmission Date: 20201103
  Serious: Yes (Death)
  Sender: FDA-Public Use
  Company Number: None

PATIENT
  Age: 63 Year
  Sex: Male
  Weight: 132.8 kg

DRUGS (19)
  1. PANTOPRAZOLE 40MG DAILY [Concomitant]
     Dates: start: 20200701, end: 20200701
  2. REMDESIVIR. [Suspect]
     Active Substance: REMDESIVIR
     Indication: COVID-19
     Dosage: ?          OTHER FREQUENCY:ONCE;?
     Route: 042
     Dates: start: 20200629, end: 20200701
  3. ALBUTEROL NEB [Concomitant]
     Active Substance: ALBUTEROL
     Dates: start: 20200628, end: 20200629
  4. LORAZEPAM 1MG [Concomitant]
     Active Substance: LORAZEPAM
     Dates: start: 20200701, end: 20200701
  5. NOREPINEPHRINE 16MG IV [Concomitant]
     Dates: start: 20200701, end: 20200701
  6. PHENELYEPHRINE 10MG IV [Concomitant]
     Dates: start: 20200701, end: 20200701
  7. HUMALOG 6 UNITS ONCE [Concomitant]
     Dates: start: 20200701, end: 20200701
  8. LEVAQUIN 750MG/150ML IV Q24H [Concomitant]
     Dates: start: 20200629, end: 20200701
  9. ETOMIDATE 10 MG ONCE [Concomitant]
     Dates: start: 20200701, end: 20200701
  10. HYDROCHLOROTHIAZIDE 25MG 1QD [Concomitant]
     Dates: start: 20200628, end: 20200629
  11. FENTANYL 50MCG Q1HPRN [Concomitant]
     Dates: start: 20200701, end: 20200701
  12. EPINEPHRINE 1MG IV [Concomitant]
     Dates: start: 20200701, end: 20200701
  13. DECADRON 6MG QD [Concomitant]
     Dates: start: 20200628, end: 20200628
  14. FUROSEMIDE 40MG ONCE [Concomitant]
     Dates: start: 20200701, end: 20200701
  15. HEPARIN 5,000 UNITS [Concomitant]
     Dates: start: 20200628, end: 20200701
  16. VASOPRESSIN 20 UNITS IV [Concomitant]
     Dates: start: 20200701, end: 20200701
  17. LOSARTAN 100MG 1QD [Concomitant]
     Dates: start: 20200628, end: 20200701
  18. SOLU?MEDROL 80 IV PUSH [Concomitant]
     Dates: start: 20200629, end: 20200701
  19. MIDAZOLAM. [Concomitant]
     Active Substance: MIDAZOLAM
     Dates: start: 20200701, end: 20200701

REACTIONS (4)
  - Acute respiratory failure [None]
  - Cardiac arrest [None]
  - Cardio-respiratory arrest [None]
  - Haemodynamic instability [None]

NARRATIVE: CASE EVENT DATE: 20200701
